FAERS Safety Report 23325072 (Version 1)
Quarter: 2023Q4

REPORT INFORMATION
  Report Type: Spontaneous
  Country: US (occurrence: None)
  Receive Date: 20231221
  Receipt Date: 20231221
  Transmission Date: 20240109
  Serious: No
  Sender: FDA-Public Use
  Company Number: 2023A289638

PATIENT
  Age: 3 Month
  Sex: Female

DRUGS (1)
  1. BEYFORTUS [Suspect]
     Active Substance: NIRSEVIMAB-ALIP
     Indication: Respiratory syncytial virus immunisation
     Dosage: UNK

REACTIONS (4)
  - Diarrhoea [Unknown]
  - Abnormal faeces [Unknown]
  - Faeces discoloured [Unknown]
  - Abnormal faeces [Unknown]
